FAERS Safety Report 4369930-3 (Version None)
Quarter: 2004Q2

REPORT INFORMATION
  Report Type: 
  Country: None (occurrence: None)
  Receive Date: 20040525
  Receipt Date: 20040510
  Transmission Date: 20050107
  Serious: Yes (Other)
  Sender: FDA-Public Use
  Company Number: NL-JNJFOC-20040501546

PATIENT
  Age: 5 Month
  Sex: Female

DRUGS (2)
  1. MICONAZOLE [Suspect]
     Indication: ADVERSE EVENT
     Dosage: 1 DOSE (S), 1 IN 1 DAY, ORAL
     Route: 048
     Dates: start: 19990310
  2. SIRUPUS LACTULOSE (ALTHAEA OFFICINALIS ROOT) [Concomitant]

REACTIONS (3)
  - COUGH [None]
  - DYSPNOEA [None]
  - VOMITING [None]
